FAERS Safety Report 13912201 (Version 1)
Quarter: 2017Q3

REPORT INFORMATION
  Report Type: Spontaneous
  Country: US (occurrence: US)
  Receive Date: 20170828
  Receipt Date: 20170828
  Transmission Date: 20171127
  Serious: No
  Sender: FDA-Public Use
  Company Number: US-ROCHE-GNE094326

PATIENT
  Age: 13 Year
  Sex: Female

DRUGS (11)
  1. NUTROPIN [Suspect]
     Active Substance: SOMATROPIN
     Indication: CYSTINOSIS
  2. NUTROPIN [Suspect]
     Active Substance: SOMATROPIN
     Indication: RENAL FAILURE
  3. CALCITRIOL. [Concomitant]
     Active Substance: CALCITRIOL
  4. NUTROPIN [Suspect]
     Active Substance: SOMATROPIN
     Indication: CHRONIC KIDNEY DISEASE
     Route: 058
     Dates: end: 20000113
  5. NEUTRA-PHOS [Concomitant]
     Active Substance: POTASSIUM PHOSPHATE, DIBASIC\POTASSIUM PHOSPHATE, MONOBASIC\SODIUM PHOSPHATE, DIBASIC\SODIUM PHOSPHATE, MONOBASIC
  6. POLYCITRA [Concomitant]
  7. BENADRYL [Concomitant]
     Active Substance: DIPHENHYDRAMINE HYDROCHLORIDE
  8. NUTROPIN [Suspect]
     Active Substance: SOMATROPIN
     Indication: AZOTAEMIA
     Dosage: THERAPY RESUMED
     Route: 065
  9. CYSTAGON [Concomitant]
     Active Substance: CYSTEAMINE BITARTRATE
  10. L-CARNITINE [Concomitant]
     Active Substance: LEVOCARNITINE
  11. POTASSIUM CHLORIDE. [Concomitant]
     Active Substance: POTASSIUM CHLORIDE

REACTIONS (1)
  - Urticaria [Recovering/Resolving]

NARRATIVE: CASE EVENT DATE: 20000106
